FAERS Safety Report 23765257 (Version 2)
Quarter: 2024Q2

REPORT INFORMATION
  Report Type: Spontaneous
  Country: US (occurrence: US)
  Receive Date: 20240420
  Receipt Date: 20240516
  Transmission Date: 20240715
  Serious: No
  Sender: FDA-Public Use
  Company Number: US-BAYER-2024A052618

PATIENT
  Age: 24 Year
  Sex: Female
  Weight: 47.6 kg

DRUGS (3)
  1. KYLEENA [Suspect]
     Active Substance: LEVONORGESTREL
     Indication: Intrauterine contraception
     Dosage: 17.5?G/DAY
     Route: 015
     Dates: start: 20230310, end: 20230818
  2. METRONIDAZOLE [Concomitant]
     Active Substance: METRONIDAZOLE
     Dosage: UNK
     Route: 067
     Dates: start: 20230727
  3. VITAMIN D2 [Concomitant]
     Active Substance: ERGOCALCIFEROL
     Dosage: UNK
     Route: 048
     Dates: start: 20230724

REACTIONS (1)
  - Device dislocation [Recovered/Resolved]
